FAERS Safety Report 6580361-8 (Version None)
Quarter: 2010Q1

REPORT INFORMATION
  Report Type: 
  Country: None (occurrence: None)
  Receive Date: 20100212
  Receipt Date: 20100201
  Transmission Date: 20100710
  Serious: Yes (Other)
  Sender: FDA-Public Use
  Company Number: PHEH2008US08907

PATIENT
  Sex: Female

DRUGS (6)
  1. AREDIA [Suspect]
  2. ZOMETA [Suspect]
     Dosage: UNK
     Dates: start: 20030401, end: 20070101
  3. PERCOCET [Concomitant]
  4. AVELOX [Concomitant]
  5. FLAGYL [Concomitant]
     Dosage: 500 MG, QID
  6. RADIATION [Concomitant]

REACTIONS (13)
  - ANHEDONIA [None]
  - ANXIETY [None]
  - BONE DEBRIDEMENT [None]
  - BONE DISORDER [None]
  - DISABILITY [None]
  - GINGIVAL SWELLING [None]
  - INJURY [None]
  - NEUROPATHY PERIPHERAL [None]
  - OSTEOMYELITIS [None]
  - OSTEONECROSIS [None]
  - PAIN [None]
  - THROMBOCYTOPENIA [None]
  - TOOTH ABSCESS [None]
